FAERS Safety Report 17244084 (Version 7)
Quarter: 2021Q2

REPORT INFORMATION
  Report Type: Report from Study
  Country: IT (occurrence: IT)
  Receive Date: 20200107
  Receipt Date: 20210422
  Transmission Date: 20210716
  Serious: Yes (Other)
  Sender: FDA-Public Use
  Company Number: PHHY2019IT167550

PATIENT
  Age: 77 Year
  Sex: Female

DRUGS (18)
  1. TAFINLAR [Suspect]
     Active Substance: DABRAFENIB MESYLATE
     Dosage: 300 UNK
     Route: 065
     Dates: start: 20190408, end: 20190416
  2. IDROCLOROTIAZIDE [Concomitant]
     Active Substance: HYDROCHLOROTHIAZIDE
     Indication: HYPERTENSION
     Dosage: UNK
     Route: 048
  3. VALSARTAN. [Concomitant]
     Active Substance: VALSARTAN
     Indication: HYPERTENSION
     Dosage: UNK
     Route: 048
  4. POTASSION [Concomitant]
     Active Substance: POTASSIUM CHLORIDE
     Indication: HYPOKALAEMIA
     Dosage: 1 UNK
     Route: 048
     Dates: start: 20190730, end: 20190902
  5. TAFINLAR [Suspect]
     Active Substance: DABRAFENIB MESYLATE
     Dosage: 300 UNK
     Route: 065
     Dates: start: 20190803, end: 20190814
  6. TAFINLAR [Suspect]
     Active Substance: DABRAFENIB MESYLATE
     Dosage: 300 UNK
     Route: 065
     Dates: start: 20190828, end: 20190902
  7. TAFINLAR [Suspect]
     Active Substance: DABRAFENIB MESYLATE
     Dosage: 300 UNK
     Route: 065
     Dates: start: 20190419
  8. TAFINLAR [Suspect]
     Active Substance: DABRAFENIB MESYLATE
     Dosage: 150 UNK
     Route: 065
     Dates: start: 20191011, end: 20191119
  9. TRAMETINIB [Suspect]
     Active Substance: TRAMETINIB
     Dosage: 2 UNK
     Route: 065
     Dates: start: 20190419, end: 20190730
  10. TRAMETINIB [Suspect]
     Active Substance: TRAMETINIB
     Dosage: 2 UNK
     Route: 065
     Dates: start: 20190828, end: 20190902
  11. TRAMETINIB [Suspect]
     Active Substance: TRAMETINIB
     Dosage: 2 UNK
     Route: 065
     Dates: start: 20190408, end: 20190416
  12. TRAMETINIB [Suspect]
     Active Substance: TRAMETINIB
     Dosage: 2 UNK
     Route: 065
     Dates: start: 20190803, end: 20190814
  13. TAFINLAR [Suspect]
     Active Substance: DABRAFENIB MESYLATE
     Indication: METASTATIC MALIGNANT MELANOMA
     Dosage: 300 UNK
     Route: 065
     Dates: start: 20190327, end: 20190403
  14. TAFINLAR [Suspect]
     Active Substance: DABRAFENIB MESYLATE
     Dosage: 200 UNK
     Route: 065
     Dates: start: 20190919, end: 20190926
  15. TRAMETINIB [Suspect]
     Active Substance: TRAMETINIB
     Dosage: 2 UNK
     Route: 065
     Dates: start: 20190919, end: 20190926
  16. AUGMENTIN [Concomitant]
     Active Substance: AMOXICILLIN\CLAVULANATE POTASSIUM
     Indication: DERMATITIS
     Dosage: 1 UNK
     Route: 048
     Dates: start: 20190730, end: 20190803
  17. TRAMETINIB [Suspect]
     Active Substance: TRAMETINIB
     Indication: METASTATIC MALIGNANT MELANOMA
     Dosage: 2 UNK
     Route: 065
     Dates: start: 20190327, end: 20190403
  18. TRAMETINIB [Suspect]
     Active Substance: TRAMETINIB
     Dosage: 2 UNK
     Route: 065
     Dates: start: 20191011, end: 20191119

REACTIONS (10)
  - Toxic skin eruption [Recovered/Resolved with Sequelae]
  - Bone pain [Recovered/Resolved]
  - Rash erythematous [Recovered/Resolved]
  - Pyrexia [Recovered/Resolved]
  - Amnesia [Recovered/Resolved]
  - Skin exfoliation [Recovered/Resolved]
  - Headache [Recovered/Resolved]
  - Skin exfoliation [Recovered/Resolved with Sequelae]
  - Toxic skin eruption [Recovered/Resolved]
  - Pyrexia [Recovered/Resolved]

NARRATIVE: CASE EVENT DATE: 20190404
